FAERS Safety Report 6641780-4 (Version None)
Quarter: 2010Q1

REPORT INFORMATION
  Report Type: 
  Country: None (occurrence: None)
  Receive Date: 20100319
  Receipt Date: 20100315
  Transmission Date: 20100710
  Serious: Yes (Hospitalization, Other)
  Sender: FDA-Public Use
  Company Number: BE-TEVA-227687ISR

PATIENT
  Age: 43 Year
  Sex: Male

DRUGS (1)
  1. CABERGOLINE [Suspect]

REACTIONS (1)
  - PNEUMOCEPHALUS [None]
